FAERS Safety Report 24376976 (Version 2)
Quarter: 2024Q4

REPORT INFORMATION
  Report Type: Report from Study
  Country: US (occurrence: US)
  Receive Date: 20240930
  Receipt Date: 20241120
  Transmission Date: 20250115
  Serious: Yes (Other)
  Sender: NOVARTIS
  Company Number: US-002147023-NVSC2024US191569

PATIENT
  Sex: Female
  Weight: 58.059 kg

DRUGS (1)
  1. ENTRESTO [Suspect]
     Active Substance: SACUBITRIL\VALSARTAN
     Indication: Product used for unknown indication
     Dosage: 103 MG, BID
     Route: 048

REACTIONS (6)
  - Rheumatic fever [Unknown]
  - Cardiac septal defect [Unknown]
  - Cardiomyopathy [Unknown]
  - Cardiac disorder [Unknown]
  - Epistaxis [Unknown]
  - Headache [Unknown]
